FAERS Safety Report 23376221 (Version 7)
Quarter: 2024Q2

REPORT INFORMATION
  Report Type: Spontaneous
  Country: US (occurrence: US)
  Receive Date: 20240108
  Receipt Date: 20240621
  Transmission Date: 20240715
  Serious: Yes (Disabling, Other)
  Sender: FDA-Public Use
  Company Number: US-SA-SAC20231229000937

PATIENT
  Age: 58 Year
  Sex: Female

DRUGS (29)
  1. DUPIXENT [Suspect]
     Active Substance: DUPILUMAB
     Indication: Rhinitis allergic
     Dosage: 600 MG, 1X
     Route: 058
     Dates: start: 20231205, end: 20231205
  2. DUPIXENT [Suspect]
     Active Substance: DUPILUMAB
     Indication: Asthma
     Dosage: 300 MG, QOW
     Route: 058
     Dates: start: 202312
  3. EFFEXOR [Concomitant]
     Active Substance: VENLAFAXINE HYDROCHLORIDE
     Dosage: UNK
  4. FUROSEMIDE [Concomitant]
     Active Substance: FUROSEMIDE
     Dosage: UNK
  5. LOSARTAN POTASSIUM [Concomitant]
     Active Substance: LOSARTAN POTASSIUM
     Dosage: UNK
  6. LYRICA [Concomitant]
     Active Substance: PREGABALIN
     Dosage: UNK
  7. METHOCARBAMOL [Concomitant]
     Active Substance: METHOCARBAMOL
     Dosage: UNK
  8. METHOCARBAMOL [Concomitant]
     Active Substance: METHOCARBAMOL
  9. MONTELUKAST [Concomitant]
     Active Substance: MONTELUKAST SODIUM
     Dosage: UNK
  10. MONTELUKAST [Concomitant]
     Active Substance: MONTELUKAST SODIUM
  11. REXULTI [Concomitant]
     Active Substance: BREXPIPRAZOLE
     Dosage: UNK
  12. REXULTI [Concomitant]
     Active Substance: BREXPIPRAZOLE
  13. ROSUVASTATIN [Concomitant]
     Active Substance: ROSUVASTATIN
     Dosage: UNK
  14. ROSUVASTATIN [Concomitant]
     Active Substance: ROSUVASTATIN
  15. SEROQUEL [Concomitant]
     Active Substance: QUETIAPINE FUMARATE
     Dosage: UNK
  16. SEROQUEL [Concomitant]
     Active Substance: QUETIAPINE FUMARATE
  17. TRELEGY ELLIPTA [Concomitant]
     Active Substance: FLUTICASONE FUROATE\UMECLIDINIUM BROMIDE\VILANTEROL TRIFENATATE
     Dosage: UNK
  18. TRELEGY ELLIPTA [Concomitant]
     Active Substance: FLUTICASONE FUROATE\UMECLIDINIUM BROMIDE\VILANTEROL TRIFENATATE
  19. WELLBUTRIN [Concomitant]
     Active Substance: BUPROPION HYDROCHLORIDE
     Dosage: UNK
  20. WELLBUTRIN [Concomitant]
     Active Substance: BUPROPION HYDROCHLORIDE
  21. XANAX [Concomitant]
     Active Substance: ALPRAZOLAM
     Dosage: UNK
  22. XANAX [Concomitant]
     Active Substance: ALPRAZOLAM
     Dosage: UNK
  23. METOPROLOL SUCCINATE [Concomitant]
     Active Substance: METOPROLOL SUCCINATE
     Dosage: UNK
  24. NEXIUM I.V. [Concomitant]
     Active Substance: ESOMEPRAZOLE SODIUM
     Dosage: UNK
  25. TRULICITY [Concomitant]
     Active Substance: DULAGLUTIDE
     Dosage: UNK
  26. ALBUTEROL SULFATE [Concomitant]
     Active Substance: ALBUTEROL SULFATE
     Dosage: UNK
  27. ASPIRIN [Concomitant]
     Active Substance: ASPIRIN
     Dosage: UNK
  28. TELMISARTAN [Concomitant]
     Active Substance: TELMISARTAN
     Dosage: UNK
  29. CIPRO [Concomitant]
     Active Substance: CIPROFLOXACIN\CIPROFLOXACIN HYDROCHLORIDE

REACTIONS (30)
  - Diabetes mellitus [Not Recovered/Not Resolved]
  - Hepatic infection [Recovering/Resolving]
  - Pancreas infection [Recovering/Resolving]
  - Loss of personal independence in daily activities [Unknown]
  - Renal disorder [Unknown]
  - Hypertension [Unknown]
  - Heart rate abnormal [Unknown]
  - Dysphonia [Unknown]
  - Influenza [Not Recovered/Not Resolved]
  - Rhinorrhoea [Unknown]
  - Nasopharyngitis [Unknown]
  - Oropharyngeal pain [Unknown]
  - Urinary tract infection [Unknown]
  - Sneezing [Unknown]
  - Gastric infection [Unknown]
  - Abdominal pain [Unknown]
  - Nausea [Unknown]
  - Diarrhoea [Unknown]
  - Multiple allergies [Unknown]
  - Gallbladder disorder [Unknown]
  - White blood cell count increased [Unknown]
  - Back pain [Unknown]
  - Abdominal discomfort [Recovering/Resolving]
  - Sinusitis [Unknown]
  - Insomnia [Unknown]
  - Dry eye [Unknown]
  - Asthma [Unknown]
  - Dyspnoea [Unknown]
  - Wheezing [Unknown]
  - Product use in unapproved indication [Unknown]

NARRATIVE: CASE EVENT DATE: 20231201
